FAERS Safety Report 23479670 (Version 2)
Quarter: 2024Q1

REPORT INFORMATION
  Report Type: Other
  Country: US (occurrence: None)
  Receive Date: 20240205
  Receipt Date: 20240208
  Transmission Date: 20240410
  Serious: Yes (Death)
  Sender: FDA-Public Use
  Company Number: US-ROCHE-2434865

PATIENT
  Age: 76 Year
  Sex: Female

DRUGS (4)
  1. PULMOZYME [Suspect]
     Active Substance: DORNASE ALFA
     Indication: Bronchiectasis
     Route: 055
     Dates: start: 20190703, end: 20240112
  2. PULMOZYME [Suspect]
     Active Substance: DORNASE ALFA
     Indication: Pleural disorder
  3. PULMOZYME [Suspect]
     Active Substance: DORNASE ALFA
     Indication: Acute respiratory failure
  4. PULMOZYME [Suspect]
     Active Substance: DORNASE ALFA
     Indication: Cystic fibrosis

REACTIONS (1)
  - Death [Fatal]
